FAERS Safety Report 8361123-8 (Version None)
Quarter: 2012Q2

REPORT INFORMATION
  Report Type: 
  Country: None (occurrence: None)
  Receive Date: 20120515
  Receipt Date: 20120330
  Transmission Date: 20120825
  Serious: Yes (Life-Threatening, Hospitalization, Other)
  Sender: FDA-Public Use
  Company Number: IE-ASTRAZENECA-2012SE12187

PATIENT
  Age: 63 Year
  Sex: Male

DRUGS (2)
  1. STEROIDS [Concomitant]
  2. VIMOVO [Suspect]
     Indication: PAIN
     Dosage: 500 MGS NAPROXEN+20 MGS ESOMEPRAZOLE MAGNESUIM TWICE DAILY
     Route: 048

REACTIONS (2)
  - OFF LABEL USE [None]
  - IDIOPATHIC THROMBOCYTOPENIC PURPURA [None]
